FAERS Safety Report 5678221-X (Version None)
Quarter: 2008Q1

REPORT INFORMATION
  Report Type: 
  Country: None (occurrence: None)
  Receive Date: 20080324
  Receipt Date: 20080324
  Transmission Date: 20080703
  Serious: Yes (Hospitalization)
  Sender: FDA-Public Use
  Company Number: None

PATIENT
  Age: 63 Year
  Sex: Male

DRUGS (2)
  1. GLYBURIDE [Suspect]
     Indication: DIABETES MELLITUS
     Dosage: 5MG BID PO
     Route: 048
     Dates: start: 20010622, end: 20080319
  2. METFORMIN HCL [Suspect]
     Indication: DIABETES MELLITUS
     Dosage: 850MG BID PO
     Route: 048
     Dates: start: 20031021, end: 20080319

REACTIONS (1)
  - HYPOGLYCAEMIA [None]
